FAERS Safety Report 11199447 (Version 3)
Quarter: 2015Q3

REPORT INFORMATION
  Report Type: Report from Study
  Country: RU (occurrence: RU)
  Receive Date: 20150618
  Receipt Date: 20150728
  Transmission Date: 20151125
  Serious: Yes (Death, Hospitalization, Other)
  Sender: FDA-Public Use
  Company Number: RU-ACTELION-A-CH2015-119442

PATIENT
  Age: 37 Year
  Sex: Female
  Weight: 54 kg

DRUGS (8)
  1. VEROSPIRON [Concomitant]
     Active Substance: SPIRONOLACTONE
     Dosage: UNK
     Dates: start: 201206
  2. VENTAVIS [Concomitant]
     Active Substance: ILOPROST
     Indication: PULMONARY ARTERIAL HYPERTENSION
     Dosage: UNK
     Dates: start: 201407
  3. TRACLEER [Suspect]
     Active Substance: BOSENTAN
     Indication: PULMONARY ARTERIAL HYPERTENSION
     Dosage: 125 MG, BID
     Route: 048
     Dates: start: 20120618, end: 20141012
  4. CARDIOMAGNYL [Concomitant]
     Active Substance: ASPIRIN\MAGNESIUM HYDROXIDE
     Dosage: UNK
     Dates: start: 201206
  5. REVATIO [Concomitant]
     Active Substance: SILDENAFIL CITRATE
     Dosage: UNK
     Dates: start: 201206
  6. CAPOTEN [Concomitant]
     Active Substance: CAPTOPRIL
     Dosage: UNK
     Dates: start: 201206
  7. TRACLEER [Suspect]
     Active Substance: BOSENTAN
     Dosage: UNK
     Route: 048
     Dates: start: 20110704
  8. TRACLEER [Suspect]
     Active Substance: BOSENTAN
     Dosage: 125 MG, QID
     Route: 048
     Dates: start: 20141013, end: 20141021

REACTIONS (14)
  - Cyanosis [Fatal]
  - Jugular vein distension [Fatal]
  - Dyspnoea [Fatal]
  - Peripheral swelling [Fatal]
  - Pulmonary arterial hypertension [Fatal]
  - Cough [Recovering/Resolving]
  - Chills [Recovered/Resolved]
  - Body temperature increased [Recovered/Resolved]
  - Disease progression [Fatal]
  - Cardiovascular insufficiency [Unknown]
  - Asthenia [Recovered/Resolved]
  - Cor pulmonale chronic [Unknown]
  - Dyspnoea exertional [Fatal]
  - Cardiac arrest [Fatal]

NARRATIVE: CASE EVENT DATE: 20140912
